FAERS Safety Report 5157418-1 (Version None)
Quarter: 2006Q4

REPORT INFORMATION
  Report Type: 
  Country: None (occurrence: None)
  Receive Date: 20061127
  Receipt Date: 20061117
  Transmission Date: 20070319
  Serious: Yes (Other)
  Sender: FDA-Public Use
  Company Number: 2006UW25574

PATIENT
  Age: 71 Year
  Sex: Male

DRUGS (14)
  1. ZOLADEX [Suspect]
     Route: 058
  2. DIOVAN [Concomitant]
  3. TOPROL-XL [Concomitant]
     Route: 048
  4. PERCOCET [Concomitant]
  5. XANAX [Concomitant]
  6. PLAVIX [Concomitant]
  7. PRILOSEC [Concomitant]
     Route: 048
  8. PAXIL [Concomitant]
  9. LIPITOR [Concomitant]
  10. FLONASE [Concomitant]
  11. OXIDONE [Concomitant]
  12. ASPIRIN [Concomitant]
  13. SURFAK [Concomitant]
  14. BACLOFEN [Concomitant]

REACTIONS (2)
  - DIZZINESS [None]
  - TRANSIENT ISCHAEMIC ATTACK [None]
